FAERS Safety Report 6205391-7 (Version None)
Quarter: 2009Q2

REPORT INFORMATION
  Report Type: 
  Country: None (occurrence: None)
  Receive Date: 20090527
  Receipt Date: 20090318
  Transmission Date: 20091009
  Serious: No
  Sender: FDA-Public Use
  Company Number: US-ABBOTT-09P-163-0563281-00

PATIENT
  Sex: Male

DRUGS (7)
  1. SIMCOR [Suspect]
     Indication: BLOOD CHOLESTEROL INCREASED
     Dosage: 500-20 DAILY AT HS
     Dates: start: 20090306
  2. TRUSOPT [Concomitant]
     Indication: DRUG USE FOR UNKNOWN INDICATION
  3. TRAVATAN [Concomitant]
     Indication: DRUG USE FOR UNKNOWN INDICATION
  4. ALPHAGAN [Concomitant]
     Indication: DRUG USE FOR UNKNOWN INDICATION
  5. BETAMOL [Concomitant]
     Indication: DRUG USE FOR UNKNOWN INDICATION
  6. COREG [Concomitant]
     Indication: DRUG USE FOR UNKNOWN INDICATION
  7. ASPIRIN [Concomitant]
     Indication: DRUG USE FOR UNKNOWN INDICATION

REACTIONS (2)
  - FLUSHING [None]
  - PARAESTHESIA [None]
